FAERS Safety Report 7009572-4 (Version None)
Quarter: 2010Q3

REPORT INFORMATION
  Report Type: 
  Country: None (occurrence: None)
  Receive Date: 20100923
  Receipt Date: 20100914
  Transmission Date: 20110219
  Serious: Yes (Other)
  Sender: FDA-Public Use
  Company Number: US-US-EMD SERONO, INC.-7010746

PATIENT
  Sex: Female

DRUGS (10)
  1. REBIF [Suspect]
     Indication: PRODUCT USED FOR UNKNOWN INDICATION
     Route: 058
     Dates: start: 20030226, end: 20100302
  2. REBIF [Suspect]
     Route: 058
     Dates: start: 20100302, end: 20100101
  3. REBIF [Suspect]
     Route: 058
     Dates: start: 20100101, end: 20100801
  4. REBIF [Suspect]
     Route: 058
     Dates: start: 20100801
  5. CLONAZEPAM [Concomitant]
  6. BACLOFEN [Concomitant]
  7. BIRTH CONTROL PILLS [Concomitant]
     Route: 048
  8. FLONASE [Concomitant]
  9. PRILOSEC [Concomitant]
  10. VITAMIN D [Concomitant]

REACTIONS (2)
  - FATIGUE [None]
  - LIVER FUNCTION TEST ABNORMAL [None]
